FAERS Safety Report 16641172 (Version 1)
Quarter: 2019Q3

REPORT INFORMATION
  Report Type: Report from Study
  Country: None (occurrence: US)
  Receive Date: 20190729
  Receipt Date: 20190729
  Transmission Date: 20191004
  Serious: Yes (Other)
  Sender: FDA-Public Use
  Company Number: US-ABBVIE-19K-163-2858082-00

PATIENT
  Age: 77 Year
  Sex: Female
  Weight: 52.66 kg

DRUGS (2)
  1. HUMIRA [Suspect]
     Active Substance: ADALIMUMAB
     Route: 058
     Dates: start: 20190710
  2. HUMIRA [Suspect]
     Active Substance: ADALIMUMAB
     Indication: RHEUMATOID ARTHRITIS
     Route: 058
     Dates: end: 201901

REACTIONS (5)
  - Arthropathy [Unknown]
  - Nervous system disorder [Unknown]
  - Herpes zoster [Recovering/Resolving]
  - Gait disturbance [Unknown]
  - Breast pain [Recovering/Resolving]

NARRATIVE: CASE EVENT DATE: 2016
